FAERS Safety Report 6566901-3 (Version None)
Quarter: 2010Q1

REPORT INFORMATION
  Report Type: 
  Country: None (occurrence: None)
  Receive Date: 20100128
  Receipt Date: 20100113
  Transmission Date: 20100710
  Serious: Yes (Other)
  Sender: FDA-Public Use
  Company Number: 2010000204

PATIENT
  Age: 51 Year
  Sex: Female

DRUGS (8)
  1. TARCEVA [Suspect]
     Indication: NON-SMALL CELL LUNG CANCER
     Dosage: (150 MG, QD), ORAL
     Route: 048
     Dates: start: 20091109, end: 20091101
  2. TARCEVA [Suspect]
     Indication: NON-SMALL CELL LUNG CANCER
     Dosage: (150 MG, QD), ORAL
     Route: 048
     Dates: start: 20100101
  3. SYNTHROID [Concomitant]
  4. PROAIR HFA [Concomitant]
  5. XANAX [Concomitant]
  6. DARVOCET [Concomitant]
  7. POTASSIUM (POTASSIUM) [Concomitant]
  8. MULTI-VITAMINS [Concomitant]

REACTIONS (1)
  - ANAEMIA [None]
